FAERS Safety Report 18732325 (Version 2)
Quarter: 2021Q1

REPORT INFORMATION
  Report Type: Spontaneous
  Country: CN (occurrence: CN)
  Receive Date: 20210112
  Receipt Date: 20210125
  Transmission Date: 20210419
  Serious: Yes (Other)
  Sender: FDA-Public Use
  Company Number: CN-US-PROVELL PHARMACEUTICALS LLC-9210909

PATIENT
  Age: 57 Year
  Sex: Female

DRUGS (4)
  1. EUTHYROX [Suspect]
     Active Substance: LEVOTHYROXINE SODIUM
     Dosage: NEW FORMULATION?PRODUCTION DATE: JAN 2020
     Route: 048
     Dates: start: 20201215
  2. EUTHYROX [Suspect]
     Active Substance: LEVOTHYROXINE SODIUM
     Route: 048
     Dates: start: 2009
  3. EUTHYROX [Suspect]
     Active Substance: LEVOTHYROXINE SODIUM
     Route: 048
  4. EUTHYROX [Suspect]
     Active Substance: LEVOTHYROXINE SODIUM
     Indication: HYPOTHYROIDISM
     Dates: start: 2000

REACTIONS (7)
  - Discomfort [Recovering/Resolving]
  - Pruritus [Recovering/Resolving]
  - Tremor [Recovered/Resolved]
  - Eye swelling [Recovered/Resolved]
  - Exophthalmos [Recovered/Resolved]
  - Palpitations [Recovered/Resolved]
  - Drug intolerance [Unknown]

NARRATIVE: CASE EVENT DATE: 20210101
